FAERS Safety Report 21075373 (Version 1)
Quarter: 2022Q3

REPORT INFORMATION
  Report Type: Spontaneous
  Country: CN (occurrence: CN)
  Receive Date: 20220713
  Receipt Date: 20220713
  Transmission Date: 20221026
  Serious: Yes (Other)
  Sender: FDA-Public Use
  Company Number: None

PATIENT
  Age: 31 Year
  Sex: Female
  Weight: 55 kg

DRUGS (9)
  1. CYCLOPHOSPHAMIDE [Suspect]
     Active Substance: CYCLOPHOSPHAMIDE
     Indication: Breast cancer female
     Dosage: POWDER INJECTION, 1-3 CHEMOTHERAPY- CYCLOPHOSPHAMIDE + NS
     Route: 042
  2. CYCLOPHOSPHAMIDE [Suspect]
     Active Substance: CYCLOPHOSPHAMIDE
     Dosage: 830 MG, QD, POWDER INJECTION, 4TH CHEMOTHERAPY- CYCLOPHOSPHAMIDE (830 MG) + NS (45ML)
     Route: 042
     Dates: start: 20220427, end: 20220427
  3. SODIUM CHLORIDE [Suspect]
     Active Substance: SODIUM CHLORIDE
     Indication: Medication dilution
     Dosage: 1-3 CHEMOTHERAPY- CYCLOPHOSPHAMIDE + NS
     Route: 042
  4. SODIUM CHLORIDE [Suspect]
     Active Substance: SODIUM CHLORIDE
     Dosage: 45 ML, QD, 4TH CHEMOTHERAPY- CYCLOPHOSPHAMIDE (830 MG) + NS (45ML)
     Route: 042
     Dates: start: 20220427, end: 20220427
  5. SODIUM CHLORIDE [Suspect]
     Active Substance: SODIUM CHLORIDE
     Dosage: 1-3 CHEMOTHERAPY- EPIRUBICIN HYDROCHLORIDE + NS
     Route: 041
  6. SODIUM CHLORIDE [Suspect]
     Active Substance: SODIUM CHLORIDE
     Dosage: 100 ML, QD, 4TH CHEMOTHERAPY- EPIRUBICIN HYDROCHLORIDE (122 MG) + NS (100ML)
     Route: 041
     Dates: start: 20220427, end: 20220427
  7. EPIRUBICIN [Suspect]
     Active Substance: EPIRUBICIN
     Indication: Breast cancer female
     Dosage: 1-3 CHEMOTHERAPY- EPIRUBICIN HYDROCHLORIDE + NS
     Route: 041
  8. EPIRUBICIN [Suspect]
     Active Substance: EPIRUBICIN
     Dosage: 122 MG, QD, 4TH CHEMOTHERAPY- EPIRUBICIN HYDROCHLORIDE (122 MG) + NS (100ML)
     Route: 041
     Dates: start: 20220427, end: 20220427
  9. AI DUO [Concomitant]
     Indication: Product used for unknown indication
     Dosage: 6 MG- ON THE 3RD DAY
     Route: 058
     Dates: start: 2022

REACTIONS (2)
  - White blood cell count decreased [Recovered/Resolved]
  - Agranulocytosis [Recovered/Resolved]

NARRATIVE: CASE EVENT DATE: 20220505
